FAERS Safety Report 21344174 (Version 2)
Quarter: 2022Q4

REPORT INFORMATION
  Report Type: Spontaneous
  Country: US (occurrence: US)
  Receive Date: 20220916
  Receipt Date: 20221026
  Transmission Date: 20230112
  Serious: No
  Sender: FDA-Public Use
  Company Number: US-BRISTOL-MYERS SQUIBB COMPANY-2022-059468

PATIENT
  Age: 72 Year
  Sex: Female

DRUGS (3)
  1. POMALYST [Suspect]
     Active Substance: POMALIDOMIDE
     Indication: Plasma cell myeloma refractory
     Dosage: FREQ - TAKE 1 CAPSULE BY MOUTH EVERY DAY ON DAY 1-21
     Route: 048
     Dates: start: 20180528
  2. POMALYST [Suspect]
     Active Substance: POMALIDOMIDE
     Dosage: FREQUENCY : TAKE 1 CAPSULE BY MOUTH EVERY OTHER DAY FOR 14 DAYS THEN OFF 7 DAYS.
     Route: 048
  3. POMALYST [Suspect]
     Active Substance: POMALIDOMIDE
     Dosage: FREQUENCY: DAYS 1-21 THEN OFF FOR 7 DAYS
     Route: 048
     Dates: start: 20180529

REACTIONS (1)
  - Drug intolerance [Unknown]
